FAERS Safety Report 10468954 (Version 7)
Quarter: 2014Q4

REPORT INFORMATION
  Report Type: Spontaneous
  Country: IT (occurrence: IT)
  Receive Date: 20140923
  Receipt Date: 20141218
  Transmission Date: 20150528
  Serious: Yes (Hospitalization)
  Sender: FDA-Public Use
  Company Number: IT-ACCORD-025995

PATIENT
  Age: 55 Year
  Sex: Male

DRUGS (5)
  1. ONDANSETRON B. BRAUN [Concomitant]
     Indication: PREMEDICATION
     Dosage: ONDANSETRON B. BRAUN ^2 MG/ML SOLUTION FOR INJECTION OR INFUSION^10 VIALS OF GLASS 4 ML
     Route: 042
     Dates: start: 20140714, end: 20140901
  2. RANITIDINA ANGENERICO [Concomitant]
     Active Substance: RANITIDINE HYDROCHLORIDE
     Indication: PREMEDICATION
     Dosage: RANITIDINE ANGENERICO ^50 MG/5 ML SOLUTION FOR INJECTION^10 VIAL 5 ML
     Route: 042
     Dates: start: 20140714, end: 20140901
  3. ACCORD GEMCITABINE [Suspect]
     Active Substance: GEMCITABINE HYDROCHLORIDE
     Indication: BLADDER CANCER
     Dosage: GEMCITABINE ACCORD HEALTHCARE ^1G POWDER FOR SOLUTION FOR INFUSION^ 1 VIAL IN GLASS OF 50 ML,
     Route: 042
     Dates: start: 20140714, end: 20140901
  4. PARAPLATIN [Suspect]
     Active Substance: CARBOPLATIN
     Indication: BLADDER CANCER
     Dosage: CARBOPLATIN SUN ^10MG / ML CONCENTRATE FOR SOLUTION  INFUSION^ 1 VIAL IN GLASS WITH 15 ML
     Route: 042
     Dates: start: 20140714, end: 20140827
  5. SOLDESAM [Concomitant]
     Active Substance: DEXAMETHASONE
     Indication: PREMEDICATION
     Dosage: SOLDESAM ^4 MG / ML SOLUTION FOR INJECTION^ 3 VIALS 1 ML
     Route: 042
     Dates: start: 20140714, end: 20140901

REACTIONS (7)
  - Asthenia [Recovering/Resolving]
  - Nausea [Recovering/Resolving]
  - Decreased appetite [Recovering/Resolving]
  - Anaemia [Recovering/Resolving]
  - Dysgeusia [Recovering/Resolving]
  - Pyrexia [Recovered/Resolved]
  - Thrombocytopenia [Recovered/Resolved]

NARRATIVE: CASE EVENT DATE: 20140911
